FAERS Safety Report 22768543 (Version 3)
Quarter: 2024Q2

REPORT INFORMATION
  Report Type: Spontaneous
  Country: US (occurrence: US)
  Receive Date: 20230731
  Receipt Date: 20240408
  Transmission Date: 20240715
  Serious: No
  Sender: FDA-Public Use
  Company Number: US-ELI_LILLY_AND_COMPANY-US202307017727

PATIENT
  Age: 52 Year
  Sex: Male

DRUGS (51)
  1. MOUNJARO [Suspect]
     Active Substance: TIRZEPATIDE
     Indication: Diabetic neuropathy
     Dosage: 2.5 MG, UNKNOWN
     Route: 065
  2. MOUNJARO [Suspect]
     Active Substance: TIRZEPATIDE
     Indication: Diabetic neuropathy
     Dosage: 2.5 MG, UNKNOWN
     Route: 065
  3. MOUNJARO [Suspect]
     Active Substance: TIRZEPATIDE
     Indication: Diabetic neuropathy
     Dosage: 2.5 MG, UNKNOWN
     Route: 065
  4. MOUNJARO [Suspect]
     Active Substance: TIRZEPATIDE
     Indication: Diabetic neuropathy
     Dosage: 2.5 MG, UNKNOWN
     Route: 065
  5. MOUNJARO [Suspect]
     Active Substance: TIRZEPATIDE
     Indication: Type 2 diabetes mellitus
  6. MOUNJARO [Suspect]
     Active Substance: TIRZEPATIDE
     Indication: Type 2 diabetes mellitus
  7. MOUNJARO [Suspect]
     Active Substance: TIRZEPATIDE
     Indication: Type 2 diabetes mellitus
  8. MOUNJARO [Suspect]
     Active Substance: TIRZEPATIDE
     Indication: Type 2 diabetes mellitus
  9. MOUNJARO [Suspect]
     Active Substance: TIRZEPATIDE
     Indication: Diabetic neuropathy
     Dosage: 5 MG, UNKNOWN
     Route: 065
  10. MOUNJARO [Suspect]
     Active Substance: TIRZEPATIDE
     Indication: Diabetic neuropathy
     Dosage: 5 MG, UNKNOWN
     Route: 065
  11. MOUNJARO [Suspect]
     Active Substance: TIRZEPATIDE
     Indication: Diabetic neuropathy
     Dosage: 5 MG, UNKNOWN
     Route: 065
  12. MOUNJARO [Suspect]
     Active Substance: TIRZEPATIDE
     Indication: Diabetic neuropathy
     Dosage: 5 MG, UNKNOWN
     Route: 065
  13. MOUNJARO [Suspect]
     Active Substance: TIRZEPATIDE
     Indication: Type 2 diabetes mellitus
  14. MOUNJARO [Suspect]
     Active Substance: TIRZEPATIDE
     Indication: Type 2 diabetes mellitus
  15. MOUNJARO [Suspect]
     Active Substance: TIRZEPATIDE
     Indication: Type 2 diabetes mellitus
  16. MOUNJARO [Suspect]
     Active Substance: TIRZEPATIDE
     Indication: Type 2 diabetes mellitus
  17. MOUNJARO [Suspect]
     Active Substance: TIRZEPATIDE
     Indication: Diabetic neuropathy
     Dosage: 7.5 MG, UNKNOWN
     Route: 065
  18. MOUNJARO [Suspect]
     Active Substance: TIRZEPATIDE
     Indication: Diabetic neuropathy
     Dosage: 7.5 MG, UNKNOWN
     Route: 065
  19. MOUNJARO [Suspect]
     Active Substance: TIRZEPATIDE
     Indication: Diabetic neuropathy
     Dosage: 7.5 MG, UNKNOWN
     Route: 065
  20. MOUNJARO [Suspect]
     Active Substance: TIRZEPATIDE
     Indication: Diabetic neuropathy
     Dosage: 7.5 MG, UNKNOWN
     Route: 065
  21. MOUNJARO [Suspect]
     Active Substance: TIRZEPATIDE
     Indication: Type 2 diabetes mellitus
  22. MOUNJARO [Suspect]
     Active Substance: TIRZEPATIDE
     Indication: Type 2 diabetes mellitus
  23. MOUNJARO [Suspect]
     Active Substance: TIRZEPATIDE
     Indication: Type 2 diabetes mellitus
  24. MOUNJARO [Suspect]
     Active Substance: TIRZEPATIDE
     Indication: Type 2 diabetes mellitus
  25. MOUNJARO [Suspect]
     Active Substance: TIRZEPATIDE
     Indication: Diabetic neuropathy
     Dosage: 10 MG, UNKNOWN
     Route: 065
  26. MOUNJARO [Suspect]
     Active Substance: TIRZEPATIDE
     Indication: Diabetic neuropathy
     Dosage: 10 MG, UNKNOWN
     Route: 065
  27. MOUNJARO [Suspect]
     Active Substance: TIRZEPATIDE
     Indication: Diabetic neuropathy
     Dosage: 10 MG, UNKNOWN
     Route: 065
  28. MOUNJARO [Suspect]
     Active Substance: TIRZEPATIDE
     Indication: Diabetic neuropathy
     Dosage: 10 MG, UNKNOWN
     Route: 065
  29. MOUNJARO [Suspect]
     Active Substance: TIRZEPATIDE
     Indication: Type 2 diabetes mellitus
  30. MOUNJARO [Suspect]
     Active Substance: TIRZEPATIDE
     Indication: Type 2 diabetes mellitus
  31. MOUNJARO [Suspect]
     Active Substance: TIRZEPATIDE
     Indication: Type 2 diabetes mellitus
  32. MOUNJARO [Suspect]
     Active Substance: TIRZEPATIDE
     Indication: Type 2 diabetes mellitus
  33. MOUNJARO [Suspect]
     Active Substance: TIRZEPATIDE
     Indication: Diabetic neuropathy
     Dosage: 12.5 MG, UNKNOWN
     Route: 065
  34. MOUNJARO [Suspect]
     Active Substance: TIRZEPATIDE
     Indication: Diabetic neuropathy
     Dosage: 12.5 MG, UNKNOWN
     Route: 065
  35. MOUNJARO [Suspect]
     Active Substance: TIRZEPATIDE
     Indication: Diabetic neuropathy
     Dosage: 12.5 MG, UNKNOWN
     Route: 065
  36. MOUNJARO [Suspect]
     Active Substance: TIRZEPATIDE
     Indication: Diabetic neuropathy
     Dosage: 12.5 MG, UNKNOWN
     Route: 065
  37. MOUNJARO [Suspect]
     Active Substance: TIRZEPATIDE
     Indication: Type 2 diabetes mellitus
  38. MOUNJARO [Suspect]
     Active Substance: TIRZEPATIDE
     Indication: Type 2 diabetes mellitus
  39. MOUNJARO [Suspect]
     Active Substance: TIRZEPATIDE
     Indication: Type 2 diabetes mellitus
  40. MOUNJARO [Suspect]
     Active Substance: TIRZEPATIDE
     Indication: Type 2 diabetes mellitus
  41. MOUNJARO [Suspect]
     Active Substance: TIRZEPATIDE
     Indication: Type 2 diabetes mellitus
     Dosage: 15 MG, UNKNOWN
     Route: 058
     Dates: end: 20231210
  42. MOUNJARO [Suspect]
     Active Substance: TIRZEPATIDE
     Indication: Type 2 diabetes mellitus
     Dosage: 15 MG, UNKNOWN
     Route: 058
     Dates: end: 20231210
  43. MOUNJARO [Suspect]
     Active Substance: TIRZEPATIDE
     Indication: Type 2 diabetes mellitus
     Dosage: 15 MG, UNKNOWN
     Route: 058
     Dates: end: 20231210
  44. MOUNJARO [Suspect]
     Active Substance: TIRZEPATIDE
     Indication: Type 2 diabetes mellitus
     Dosage: 15 MG, UNKNOWN
     Route: 058
     Dates: end: 20231210
  45. MOUNJARO [Suspect]
     Active Substance: TIRZEPATIDE
     Indication: Diabetic neuropathy
  46. MOUNJARO [Suspect]
     Active Substance: TIRZEPATIDE
     Indication: Diabetic neuropathy
  47. MOUNJARO [Suspect]
     Active Substance: TIRZEPATIDE
     Indication: Diabetic neuropathy
  48. MOUNJARO [Suspect]
     Active Substance: TIRZEPATIDE
     Indication: Diabetic neuropathy
  49. GLIMEPIRIDE [Concomitant]
     Active Substance: GLIMEPIRIDE
     Indication: Product used for unknown indication
  50. METFORMIN [Concomitant]
     Active Substance: METFORMIN HYDROCHLORIDE
     Indication: Product used for unknown indication
  51. OZEMPIC [Concomitant]
     Active Substance: SEMAGLUTIDE
     Indication: Product used for unknown indication

REACTIONS (10)
  - Glycosylated haemoglobin increased [Not Recovered/Not Resolved]
  - Vision blurred [Not Recovered/Not Resolved]
  - Neuralgia [Not Recovered/Not Resolved]
  - Feeling abnormal [Not Recovered/Not Resolved]
  - Dizziness [Not Recovered/Not Resolved]
  - Dysphonia [Unknown]
  - Dysphagia [Unknown]
  - Swelling [Unknown]
  - Dyspnoea [Unknown]
  - Drug ineffective [Unknown]

NARRATIVE: CASE EVENT DATE: 20230701
